FAERS Safety Report 10782457 (Version 1)
Quarter: 2015Q1

REPORT INFORMATION
  Report Type: Spontaneous
  Country: US (occurrence: None)
  Receive Date: 20150209
  Receipt Date: 20150209
  Transmission Date: 20150721
  Serious: No
  Sender: FDA-Public Use
  Company Number: None

PATIENT
  Age: 48 Year
  Sex: Male
  Weight: 85.7 kg

DRUGS (1)
  1. WARFARIN [Suspect]
     Active Substance: WARFARIN
     Indication: DEEP VEIN THROMBOSIS
     Route: 048
     Dates: start: 20140703, end: 20141124

REACTIONS (5)
  - Diverticulum intestinal [None]
  - Duodenal ulcer [None]
  - Gastritis [None]
  - Anticoagulation drug level below therapeutic [None]
  - Gastric haemorrhage [None]

NARRATIVE: CASE EVENT DATE: 20141117
